FAERS Safety Report 8590565-0 (Version None)
Quarter: 2012Q3

REPORT INFORMATION
  Report Type: 
  Country: None (occurrence: None)
  Receive Date: 20120813
  Receipt Date: 20120525
  Transmission Date: 20120928
  Serious: Yes (Hospitalization)
  Sender: FDA-Public Use
  Company Number: JP-009507513-1208JPN005180

PATIENT

DRUGS (11)
  1. LANSOPRAZOLE [Concomitant]
     Route: 048
     Dates: end: 20120509
  2. REBETOL [Suspect]
     Route: 048
     Dates: start: 20120503, end: 20120513
  3. PEG-INTRON [Suspect]
     Dosage: 0.75MCG/KG/WEEK
     Route: 058
     Dates: start: 20120510, end: 20120513
  4. NORVASC [Concomitant]
     Route: 048
  5. PEG-INTRON [Suspect]
     Dosage: 1.5MCG/KG/WEEK
     Route: 058
     Dates: end: 20120509
  6. REBETOL [Suspect]
     Indication: HEPATITIS C
     Route: 048
     Dates: start: 20120309, end: 20120502
  7. URSO 250 [Concomitant]
     Indication: HEPATITIS C
     Route: 048
  8. TANATRIL [Concomitant]
     Route: 048
  9. PEG-INTRON [Suspect]
     Indication: HEPATITIS C
     Dosage: 1.4MCG/KG/WEEK
     Route: 058
     Dates: start: 20120309
  10. TELAVIC [Suspect]
     Indication: HEPATITIS C
     Route: 048
     Dates: start: 20120309, end: 20120513
  11. TAMSULOSIN HCL [Concomitant]
     Route: 048

REACTIONS (1)
  - PLEURAL EFFUSION [None]
